FAERS Safety Report 13337938 (Version 1)
Quarter: 2017Q1

REPORT INFORMATION
  Report Type: Spontaneous
  Country: US (occurrence: US)
  Receive Date: 20170315
  Receipt Date: 20170315
  Transmission Date: 20170428
  Serious: No
  Sender: FDA-Public Use
  Company Number: None

PATIENT
  Age: 71 Year
  Sex: Female

DRUGS (6)
  1. CYCLOSPORINE CAP 100MG MD [Suspect]
     Active Substance: CYCLOSPORINE
     Indication: HEADACHE
  2. CYCLOSPORINE CAP 100MG MD [Suspect]
     Active Substance: CYCLOSPORINE
     Indication: HIV INFECTION
  3. CYCLOSPORINE CAP 100MG MD [Suspect]
     Active Substance: CYCLOSPORINE
     Indication: INTERVERTEBRAL DISC DEGENERATION
  4. CYCLOSPORINE CAP 100MG MD [Suspect]
     Active Substance: CYCLOSPORINE
     Indication: FIBROMYALGIA
  5. CYCLOSPORINE CAP 100MG MD [Suspect]
     Active Substance: CYCLOSPORINE
     Indication: ESSENTIAL HYPERTENSION
  6. CYCLOSPORINE CAP 100MG MD [Suspect]
     Active Substance: CYCLOSPORINE
     Indication: MYOCARDIAL ISCHAEMIA

REACTIONS (3)
  - Transient ischaemic attack [None]
  - Dysphemia [None]
  - Tremor [None]

NARRATIVE: CASE EVENT DATE: 20161210
